FAERS Safety Report 20087681 (Version 1)
Quarter: 2021Q4

REPORT INFORMATION
  Report Type: Spontaneous
  Country: GB (occurrence: GB)
  Receive Date: 20211118
  Receipt Date: 20211118
  Transmission Date: 20220303
  Serious: Yes (Other)
  Sender: FDA-Public Use
  Company Number: None

PATIENT
  Age: 66 Year
  Sex: Male
  Weight: 114.3 kg

DRUGS (4)
  1. LANSOPRAZOLE [Suspect]
     Active Substance: LANSOPRAZOLE
     Indication: Product used for unknown indication
     Dosage: 1 X 30MG PER DAY
     Route: 048
     Dates: start: 202101, end: 20210311
  2. APERCAP [Concomitant]
     Indication: Ill-defined disorder
     Dosage: UNK
  3. POLYETHYLENE GLYCOL 3350\POTASSIUM CHLORIDE\SODIUM BICARBONATE\SODIUM [Concomitant]
     Active Substance: POLYETHYLENE GLYCOL 3350\POTASSIUM CHLORIDE\SODIUM BICARBONATE\SODIUM CHLORIDE
     Indication: Ill-defined disorder
     Dosage: UNK
  4. CLOPIDOGREL [Concomitant]
     Active Substance: CLOPIDOGREL BISULFATE
     Dosage: UNK
     Dates: start: 202101, end: 20210311

REACTIONS (6)
  - Pain in extremity [Recovering/Resolving]
  - Myalgia [Recovering/Resolving]
  - Pain [Recovering/Resolving]
  - Arthralgia [Recovering/Resolving]
  - Movement disorder [Unknown]
  - Medication error [Unknown]

NARRATIVE: CASE EVENT DATE: 20210201
